FAERS Safety Report 8935637 (Version 1)
Quarter: 2012Q4

REPORT INFORMATION
  Report Type: Spontaneous
  Country: US (occurrence: None)
  Receive Date: 20121128
  Receipt Date: 20121128
  Transmission Date: 20130627
  Serious: Yes (Life-Threatening, Hospitalization)
  Sender: FDA-Public Use
  Company Number: None

PATIENT
  Age: 51 Year
  Sex: Female
  Weight: 63 kg

DRUGS (1)
  1. ESTROGENS [Suspect]
     Indication: HORMONE THERAPY
     Route: 048
     Dates: start: 20040929, end: 20120924

REACTIONS (2)
  - Transient ischaemic attack [None]
  - Cerebrovascular accident [None]
